FAERS Safety Report 8581435 (Version 2)
Quarter: 2012Q4

REPORT INFORMATION
  Report Type: 
  Country: US (occurrence: US)
  Receive Date: 20120525
  Receipt Date: 20121018
  Transmission Date: 20130627
  Serious: Yes (Other)
  Sender: FDA-Public Use
  Company Number: US-US-EMD SERONO, INC.-7134162

PATIENT
  Age: 59 None
  Sex: Female

DRUGS (1)
  1. REBIF [Suspect]
     Indication: MULTIPLE SCLEROSIS
     Route: 058
     Dates: start: 20110707, end: 201205

REACTIONS (3)
  - Hip arthroplasty [Recovering/Resolving]
  - Postoperative wound complication [Unknown]
  - Multiple sclerosis relapse [Not Recovered/Not Resolved]
